FAERS Safety Report 7235865-1 (Version None)
Quarter: 2011Q1

REPORT INFORMATION
  Report Type: 
  Country: None (occurrence: None)
  Receive Date: 20110120
  Receipt Date: 20110111
  Transmission Date: 20110831
  Serious: Yes (Hospitalization)
  Sender: FDA-Public Use
  Company Number: NL-ROCHE-752826

PATIENT
  Sex: Male
  Weight: 80 kg

DRUGS (4)
  1. XELODA [Suspect]
     Route: 048
     Dates: start: 20100301, end: 20100901
  2. XELODA [Suspect]
     Indication: COLON CANCER METASTATIC
     Route: 048
     Dates: start: 20090101, end: 20090501
  3. OXYCODONE HCL [Concomitant]
     Dosage: FREQUENCY : AS PER NEEDED
     Dates: start: 20100801
  4. DICLOFENAC SODIUM [Concomitant]
     Route: 048
     Dates: start: 20100601

REACTIONS (1)
  - OSTEONECROSIS [None]
